FAERS Safety Report 5292660-0 (Version None)
Quarter: 2007Q2

REPORT INFORMATION
  Report Type: 
  Country: None (occurrence: None)
  Receive Date: 20070404
  Receipt Date: 20070324
  Transmission Date: 20071010
  Serious: Yes (Hospitalization)
  Sender: FDA-Public Use
  Company Number: 2007SP001770

PATIENT
  Age: 54 Year
  Sex: Female

DRUGS (2)
  1. PEG-INTRON [Suspect]
     Indication: HEPATITIS C
     Dosage: SC
     Route: 058
     Dates: start: 20070101, end: 20070312
  2. RIBAVIRIN [Suspect]
     Indication: HEPATITIS C
     Dosage: PO
     Route: 048
     Dates: start: 20070101, end: 20070312

REACTIONS (24)
  - AGGRESSION [None]
  - ANGER [None]
  - ASTHENIA [None]
  - BALANCE DISORDER [None]
  - BLOOD SODIUM DECREASED [None]
  - BURNING SENSATION [None]
  - CHILLS [None]
  - CONTUSION [None]
  - DECREASED APPETITE [None]
  - DIZZINESS [None]
  - DYSPNOEA [None]
  - DYSURIA [None]
  - EMOTIONAL DISORDER [None]
  - FATIGUE [None]
  - GAIT DISTURBANCE [None]
  - HYPERHIDROSIS [None]
  - MEMORY IMPAIRMENT [None]
  - MICTURITION URGENCY [None]
  - MYOCARDIAL INFARCTION [None]
  - NAUSEA [None]
  - PLATELET COUNT DECREASED [None]
  - SOMNOLENCE [None]
  - THIRST [None]
  - TREMOR [None]
